FAERS Safety Report 21284806 (Version 1)
Quarter: 2022Q3

REPORT INFORMATION
  Report Type: Spontaneous
  Country: US (occurrence: US)
  Receive Date: 20220902
  Receipt Date: 20220902
  Transmission Date: 20221027
  Serious: No
  Sender: FDA-Public Use
  Company Number: ENDG22-00521

PATIENT
  Age: 61 Year
  Sex: Female

DRUGS (1)
  1. PREDNISONE [Suspect]
     Active Substance: PREDNISONE
     Indication: Herpes virus infection
     Dosage: 10 MG, OD
     Route: 048
     Dates: start: 20191105, end: 20191105

REACTIONS (7)
  - Hypoaesthesia [Unknown]
  - Blepharospasm [Unknown]
  - Palpitations [Unknown]
  - Disturbance in attention [Unknown]
  - Ear discomfort [Unknown]
  - Tinnitus [Not Recovered/Not Resolved]
  - Off label use [Recovered/Resolved]

NARRATIVE: CASE EVENT DATE: 20191105
